APPROVED DRUG PRODUCT: TOLBUTAMIDE
Active Ingredient: TOLBUTAMIDE
Strength: 500MG
Dosage Form/Route: TABLET;ORAL
Application: A087876 | Product #001
Applicant: VANGARD LABORATORIES INC DIV MIDWAY MEDICAL CO
Approved: Apr 20, 1982 | RLD: No | RS: No | Type: DISCN